FAERS Safety Report 19628021 (Version 2)
Quarter: 2021Q4

REPORT INFORMATION
  Report Type: Report from Study
  Country: None (occurrence: US)
  Receive Date: 20210729
  Receipt Date: 20211001
  Transmission Date: 20220303
  Serious: Yes (Other)
  Sender: FDA-Public Use
  Company Number: US-ABBVIE-21K-163-4011778-00

PATIENT
  Sex: Female

DRUGS (2)
  1. HUMIRA [Suspect]
     Active Substance: ADALIMUMAB
     Indication: Uveitis
     Dosage: CITRATE FREE
     Route: 058
  2. MODERNA COVID-19 VACCINE [Concomitant]
     Active Substance: CX-024414
     Indication: COVID-19 immunisation
     Dosage: MODERNA
     Route: 030

REACTIONS (6)
  - Gastric disorder [Recovering/Resolving]
  - Cataract [Not Recovered/Not Resolved]
  - Fall [Recovering/Resolving]
  - Tooth fracture [Recovering/Resolving]
  - Ocular discomfort [Recovering/Resolving]
  - Hiatus hernia [Recovered/Resolved]
